FAERS Safety Report 19104913 (Version 2)
Quarter: 2021Q2

REPORT INFORMATION
  Report Type: Spontaneous
  Country: CN (occurrence: CN)
  Receive Date: 20210407
  Receipt Date: 20210420
  Transmission Date: 20210717
  Serious: Yes (Other)
  Sender: FDA-Public Use
  Company Number: NVSC2021CN076150

PATIENT
  Sex: Male
  Weight: 80 kg

DRUGS (3)
  1. TOBRADEX [Suspect]
     Active Substance: DEXAMETHASONE\TOBRAMYCIN
     Indication: OCULAR HYPERAEMIA
     Dosage: UNK, QD ONCE/NIGHT
     Route: 065
     Dates: start: 20210121
  2. FLUOROMETHOLONE. [Concomitant]
     Active Substance: FLUOROMETHOLONE
     Indication: PRODUCT USED FOR UNKNOWN INDICATION
     Route: 065
  3. DEXAMETHASONE. [Suspect]
     Active Substance: DEXAMETHASONE
     Indication: OCULAR HYPERAEMIA
     Dosage: UNK
     Route: 065
     Dates: start: 20210121

REACTIONS (5)
  - Incorrect product administration duration [Unknown]
  - Inappropriate schedule of product administration [Unknown]
  - Off label use [Unknown]
  - Intraocular pressure increased [Recovered/Resolved]
  - Ocular hyperaemia [Not Recovered/Not Resolved]
